FAERS Safety Report 4821888-6 (Version None)
Quarter: 2005Q4

REPORT INFORMATION
  Report Type: 
  Country: None (occurrence: None)
  Receive Date: 20051103
  Receipt Date: 20051022
  Transmission Date: 20060501
  Serious: Yes (Hospitalization, Other)
  Sender: FDA-Public Use
  Company Number: 2005144512

PATIENT
  Age: 30 Year
  Sex: Female
  Weight: 50 kg

DRUGS (2)
  1. DEPO-PROVERA [Suspect]
     Indication: ILL-DEFINED DISORDER
     Dosage: UNKNOWN (FIRST INJECTION/TRIMESTRAL); INTRAMUSCULAR (SEE IMAGE
     Route: 030
     Dates: start: 20040701, end: 20040701
  2. DEPO-PROVERA [Suspect]
     Indication: ILL-DEFINED DISORDER
     Dosage: UNKNOWN (FIRST INJECTION/TRIMESTRAL); INTRAMUSCULAR (SEE IMAGE
     Route: 030
     Dates: start: 20050401, end: 20050401

REACTIONS (5)
  - ABDOMINAL PAIN LOWER [None]
  - AMENORRHOEA [None]
  - CERVICAL STRICTURE [None]
  - METRORRHAGIA [None]
  - UTERINE HAEMORRHAGE [None]
